FAERS Safety Report 4838567-1 (Version None)
Quarter: 2005Q4

REPORT INFORMATION
  Report Type: 
  Country: None (occurrence: None)
  Receive Date: 20051122
  Receipt Date: 20051111
  Transmission Date: 20060501
  Serious: Yes (Hospitalization)
  Sender: FDA-Public Use
  Company Number: 2005US-01169

PATIENT
  Age: 14 Month
  Sex: Female

DRUGS (4)
  1. GUAIFENESIN (GUAIFENESIN) [Suspect]
     Indication: BRONCHITIS
     Dosage: 13 SUPPOSITORIES TOTAL, RECTAL
     Route: 054
  2. CAMPHOR [Suspect]
     Indication: BRONCHITIS
  3. CINEOLE [Suspect]
     Indication: BRONCHITIS
  4. PHOLCODINE TAB [Suspect]
     Indication: BRONCHITIS

REACTIONS (6)
  - DRUG LEVEL INCREASED [None]
  - HYPOGLYCAEMIA [None]
  - HYPOTENSION [None]
  - METABOLIC ACIDOSIS [None]
  - MIOSIS [None]
  - SOMNOLENCE [None]
